FAERS Safety Report 5620294-4 (Version None)
Quarter: 2008Q1

REPORT INFORMATION
  Report Type: 
  Country: None (occurrence: None)
  Receive Date: 20080208
  Receipt Date: 20080124
  Transmission Date: 20080703
  Serious: Yes (Other)
  Sender: FDA-Public Use
  Company Number: JP-GENENTECH-255509

PATIENT
  Age: 75 Year
  Sex: Female

DRUGS (3)
  1. HERCEPTIN [Suspect]
     Indication: BREAST CANCER
     Dosage: 4 MG/KG, QD
     Route: 041
     Dates: start: 20050107, end: 20050401
  2. HERCEPTIN [Suspect]
     Dates: start: 20060508
  3. ARIMIDEX [Concomitant]
     Indication: DRUG USE FOR UNKNOWN INDICATION

REACTIONS (1)
  - DELIRIUM [None]
